FAERS Safety Report 20965754 (Version 1)
Quarter: 2022Q2

REPORT INFORMATION
  Report Type: Report from Study
  Country: US (occurrence: US)
  Receive Date: 20220616
  Receipt Date: 20220616
  Transmission Date: 20220721
  Serious: Yes (Other)
  Sender: FDA-Public Use
  Company Number: US-JNJFOC-20220622068

PATIENT
  Age: 55 Year
  Sex: Female
  Weight: 63.5 kg

DRUGS (4)
  1. MACITENTAN [Suspect]
     Active Substance: MACITENTAN
     Indication: Product used for unknown indication
     Route: 048
  2. TREPROSTINIL [Suspect]
     Active Substance: TREPROSTINIL
     Indication: Pulmonary arterial hypertension
     Route: 065
     Dates: start: 20211022
  3. TREPROSTINIL [Suspect]
     Active Substance: TREPROSTINIL
     Route: 048
  4. ELIQUIS [Concomitant]
     Active Substance: APIXABAN

REACTIONS (1)
  - Liver disorder [Unknown]
